FAERS Safety Report 18123719 (Version 1)
Quarter: 2020Q3

REPORT INFORMATION
  Report Type: Report from Study
  Country: US (occurrence: US)
  Receive Date: 20200807
  Receipt Date: 20200807
  Transmission Date: 20201103
  Serious: No
  Sender: FDA-Public Use
  Company Number: US-AEGERION PHARMACEUTICAL, INC-AEGR004910

PATIENT
  Age: 12 Year
  Sex: Female

DRUGS (4)
  1. METRELEPTIN [Suspect]
     Active Substance: METRELEPTIN
     Dosage: 2.2 MG, QD
     Route: 058
     Dates: start: 20160809, end: 20180913
  2. MIRALAX [Concomitant]
     Active Substance: POLYETHYLENE GLYCOL 3350
     Indication: PRODUCT USED FOR UNKNOWN INDICATION
     Dosage: 1 PACKET, PRN
     Route: 048
  3. METRELEPTIN [Suspect]
     Active Substance: METRELEPTIN
     Indication: CONGENITAL GENERALISED LIPODYSTROPHY
     Dosage: 3 UNK, UNK
     Route: 058
     Dates: start: 20141023
  4. METRELEPTIN [Suspect]
     Active Substance: METRELEPTIN
     Dosage: 3 MG, QD
     Route: 058
     Dates: start: 20180913

REACTIONS (1)
  - Rash [Not Recovered/Not Resolved]

NARRATIVE: CASE EVENT DATE: 20200403
